FAERS Safety Report 18257951 (Version 5)
Quarter: 2025Q1

REPORT INFORMATION
  Report Type: Spontaneous
  Country: US (occurrence: US)
  Receive Date: 20200911
  Receipt Date: 20250210
  Transmission Date: 20250409
  Serious: Yes (Hospitalization, Other)
  Sender: PFIZER
  Company Number: US-PFIZER INC-2020190247

PATIENT
  Age: 69 Year
  Sex: Female
  Weight: 94.998 kg

DRUGS (13)
  1. XELJANZ XR [Suspect]
     Active Substance: TOFACITINIB CITRATE
     Indication: Rheumatoid arthritis
     Dosage: 11 MG, 1X/DAY
     Route: 048
     Dates: start: 2019, end: 202003
  2. XELJANZ XR [Suspect]
     Active Substance: TOFACITINIB CITRATE
     Dosage: 11 MG, 1X/DAY
  3. XELJANZ XR [Suspect]
     Active Substance: TOFACITINIB CITRATE
     Dosage: 11 MG, DAILY
     Route: 048
  4. NOVOLOG [Concomitant]
     Active Substance: INSULIN ASPART
  5. SINGULAIR [Concomitant]
     Active Substance: MONTELUKAST SODIUM
  6. OZEMPIC [Concomitant]
     Active Substance: SEMAGLUTIDE
  7. OMEPRAZOLE [Concomitant]
     Active Substance: OMEPRAZOLE
  8. SALICYLIC ACID\TRIAMCINOLONE ACETONIDE [Concomitant]
     Active Substance: SALICYLIC ACID\TRIAMCINOLONE ACETONIDE
  9. ASPIRIN [Concomitant]
     Active Substance: ASPIRIN
  10. TEMOVATE [Concomitant]
     Active Substance: CLOBETASOL PROPIONATE
  11. DICLOFENAC DIETHYLAMINE [Concomitant]
     Active Substance: DICLOFENAC DIETHYLAMINE
  12. DOXYCYCLINE [Concomitant]
     Active Substance: DOXYCYCLINE
  13. CYMBALTA [Concomitant]
     Active Substance: DULOXETINE HYDROCHLORIDE

REACTIONS (4)
  - Blindness unilateral [Not Recovered/Not Resolved]
  - Ocular vascular disorder [Unknown]
  - Alopecia [Unknown]
  - Gait disturbance [Not Recovered/Not Resolved]

NARRATIVE: CASE EVENT DATE: 20241124
